FAERS Safety Report 12441847 (Version 1)
Quarter: 2016Q2

REPORT INFORMATION
  Report Type: Spontaneous
  Country: US (occurrence: None)
  Receive Date: 20160606
  Receipt Date: 20160606
  Transmission Date: 20160815
  Serious: Yes (Hospitalization, Other)
  Sender: FDA-Public Use
  Company Number: None

PATIENT
  Age: 48 Year
  Sex: Female
  Weight: 92.7 kg

DRUGS (1)
  1. CHOLECALCIFEROL [Suspect]
     Active Substance: CHOLECALCIFEROL
     Indication: VITAMIN D DEFICIENCY
     Dosage: 800 UNITS AM PO
     Route: 048
     Dates: start: 20110711, end: 20110802

REACTIONS (5)
  - Anaphylactic reaction [None]
  - Pyrexia [None]
  - Urticaria [None]
  - Respiratory depression [None]
  - Rash [None]

NARRATIVE: CASE EVENT DATE: 20110802
